FAERS Safety Report 4753880-4 (Version None)
Quarter: 2005Q3

REPORT INFORMATION
  Report Type: 
  Country: None (occurrence: None)
  Receive Date: 20050825
  Receipt Date: 20050818
  Transmission Date: 20060218
  Serious: No
  Sender: FDA-Public Use
  Company Number: 217041

PATIENT
  Age: 22 Year
  Sex: Female
  Weight: 149.7 kg

DRUGS (5)
  1. XOLAIR [Suspect]
     Indication: ASTHMA
     Dosage: 375 MG, 2/WEEK, SUBCUTANEOUS
     Route: 058
     Dates: start: 20050405, end: 20050809
  2. ADVAIR (SALMETEROL XINAFOATE, FLUTICASONE PROPIONATE) [Concomitant]
  3. SINGULAIR (MOTELUKAST SODUM) [Concomitant]
  4. ALBUTEROL [Concomitant]
  5. IMMUNOTHERAPY NOS (IMMUNOMODULATOR NOS) [Concomitant]

REACTIONS (1)
  - PEAK EXPIRATORY FLOW RATE ABNORMAL [None]
